FAERS Safety Report 5088670-9 (Version None)
Quarter: 2006Q3

REPORT INFORMATION
  Report Type: 
  Country: None (occurrence: None)
  Receive Date: 20060825
  Receipt Date: 20060814
  Transmission Date: 20061208
  Serious: Yes (Death, Other)
  Sender: FDA-Public Use
  Company Number: DE-BRISTOL-MYERS SQUIBB COMPANY-13474317

PATIENT

DRUGS (4)
  1. CISPLATIN [Suspect]
     Indication: NEOPLASM
     Route: 042
  2. APREPITANT [Suspect]
     Route: 042
  3. ONDANSETRON HCL [Concomitant]
  4. DEXAMETHASONE [Concomitant]

REACTIONS (7)
  - DEATH [None]
  - DEHYDRATION [None]
  - DIARRHOEA [None]
  - FEBRILE NEUTROPENIA [None]
  - NAUSEA [None]
  - PNEUMONIA [None]
  - VOMITING [None]
